FAERS Safety Report 10410345 (Version 2)
Quarter: 2014Q3

REPORT INFORMATION
  Report Type: Spontaneous
  Country: US (occurrence: US)
  Receive Date: 20140826
  Receipt Date: 20140826
  Transmission Date: 20150326
  Serious: Yes (Hospitalization)
  Sender: FDA-Public Use
  Company Number: US-GLAXOSMITHKLINE-A0695007A

PATIENT
  Sex: Female
  Weight: 121.8 kg

DRUGS (7)
  1. CLONIDINE. [Concomitant]
     Active Substance: CLONIDINE
  2. VASOTEC [Concomitant]
     Active Substance: ENALAPRIL MALEATE
  3. GLUCOPHAGE [Concomitant]
     Active Substance: METFORMIN HYDROCHLORIDE
     Indication: DIABETES MELLITUS
     Dosage: 500MG PER DAY
     Dates: start: 1991, end: 2007
  4. LASIX [Concomitant]
     Active Substance: FUROSEMIDE
  5. ECOTRIN [Concomitant]
     Active Substance: ASPIRIN
  6. AVANDIA [Suspect]
     Active Substance: ROSIGLITAZONE MALEATE
     Indication: DIABETES MELLITUS
     Dosage: 8MG PER DAY
     Route: 048
     Dates: start: 2000, end: 200704
  7. CLARITIN [Concomitant]
     Active Substance: LORATADINE

REACTIONS (2)
  - Cardiac failure congestive [Unknown]
  - Heart injury [Not Recovered/Not Resolved]
